FAERS Safety Report 6035232-2 (Version None)
Quarter: 2009Q1

REPORT INFORMATION
  Report Type: 
  Country: None (occurrence: None)
  Receive Date: 20090109
  Receipt Date: 20071003
  Transmission Date: 20090719
  Serious: Yes (Hospitalization)
  Sender: FDA-Public Use
  Company Number: ST-2006-008944

PATIENT
  Age: 62 Year
  Sex: Male

DRUGS (25)
  1. BLINDED CS-866 OR PLACEBO (OLMESARTAN MEDOXOMIL) (TABLET) (OLMESARTAN [Suspect]
     Indication: DIABETIC NEPHROPATHY
     Dosage: SEE IMAGE
     Route: 048
     Dates: start: 20050105, end: 20050131
  2. BLINDED CS-866 OR PLACEBO (OLMESARTAN MEDOXOMIL) (TABLET) (OLMESARTAN [Suspect]
     Indication: TYPE 2 DIABETES MELLITUS
     Dosage: SEE IMAGE
     Route: 048
     Dates: start: 20050105, end: 20050131
  3. BLINDED CS-866 OR PLACEBO (OLMESARTAN MEDOXOMIL) (TABLET) (OLMESARTAN [Suspect]
     Indication: DIABETIC NEPHROPATHY
     Dosage: SEE IMAGE
     Route: 048
     Dates: start: 20050201, end: 20050301
  4. BLINDED CS-866 OR PLACEBO (OLMESARTAN MEDOXOMIL) (TABLET) (OLMESARTAN [Suspect]
     Indication: TYPE 2 DIABETES MELLITUS
     Dosage: SEE IMAGE
     Route: 048
     Dates: start: 20050201, end: 20050301
  5. BLINDED CS-866 OR PLACEBO (OLMESARTAN MEDOXOMIL) (TABLET) (OLMESARTAN [Suspect]
     Indication: DIABETIC NEPHROPATHY
     Dosage: SEE IMAGE
     Route: 048
     Dates: start: 20050302, end: 20060321
  6. BLINDED CS-866 OR PLACEBO (OLMESARTAN MEDOXOMIL) (TABLET) (OLMESARTAN [Suspect]
     Indication: TYPE 2 DIABETES MELLITUS
     Dosage: SEE IMAGE
     Route: 048
     Dates: start: 20050302, end: 20060321
  7. BLINDED CS-866 OR PLACEBO (OLMESARTAN MEDOXOMIL) (TABLET) (OLMESARTAN [Suspect]
     Indication: DIABETIC NEPHROPATHY
     Dosage: SEE IMAGE
     Route: 048
     Dates: start: 20060331, end: 20060331
  8. BLINDED CS-866 OR PLACEBO (OLMESARTAN MEDOXOMIL) (TABLET) (OLMESARTAN [Suspect]
     Indication: TYPE 2 DIABETES MELLITUS
     Dosage: SEE IMAGE
     Route: 048
     Dates: start: 20060331, end: 20060331
  9. ZESTRIL [Concomitant]
  10. DILATREND (CARVEDILOL) (CARVEDILOL) [Concomitant]
  11. LASIX [Concomitant]
  12. ASPIRIN [Concomitant]
  13. ELANTAN (ISOSORBIDE MONONITRATE) (ISOSORBIDE MONONITRATE) [Concomitant]
  14. ALLOPURINOL [Concomitant]
  15. NORVASC [Concomitant]
  16. COLCHICINE (COLCHICINE) (COLCHICINE) [Concomitant]
  17. GLYCERYL TRINITRATE (GLYCERYL TRINITRATE) (TABLET) (GLYCERYL TRINITRAT [Concomitant]
  18. AQUEOUS CREAM (PARAFFIN, LIQUID, EMULSIFYING WAX, WHITE SOFT PARAFFIN) [Concomitant]
  19. BETNOVATE (BETAMETHASONE) (OINTMENT) (BETAMETHASONE) [Concomitant]
  20. EMULSIFYING (PARAFFIN, LIQUID, EMULSIFYING WAX, WHITE SOFT PARAFFIN) ( [Concomitant]
  21. PIRITON (CHLORPHENAMINE MALEATE) (CHLORPHENAMINE MALEATE) [Concomitant]
  22. EMULSIFYING (PARAFFIN, LIQUID, EMULSIFYING WAX, WHITE SOFT PARAFFIN) ( [Concomitant]
  23. FENAZIN [Concomitant]
  24. ATROPINE (ATROPINE) (INJECTION) (ATROPINE) [Concomitant]
  25. ACTRAPID [Concomitant]

REACTIONS (9)
  - DERMATITIS [None]
  - HYDRONEPHROSIS [None]
  - HYPERKALAEMIA [None]
  - PROSTATOMEGALY [None]
  - RENAL IMPAIRMENT [None]
  - SEPSIS [None]
  - SINUS BRADYCARDIA [None]
  - STAPHYLOCOCCAL INFECTION [None]
  - STREPTOCOCCAL INFECTION [None]
